FAERS Safety Report 25578447 (Version 1)
Quarter: 2025Q3

REPORT INFORMATION
  Report Type: Spontaneous
  Country: GB (occurrence: GB)
  Receive Date: 20250718
  Receipt Date: 20250718
  Transmission Date: 20251021
  Serious: Yes (Hospitalization, Other)
  Sender: ELI LILLY AND COMPANY
  Company Number: None

PATIENT
  Age: 53 Year
  Sex: Female
  Weight: 89 kg

DRUGS (1)
  1. MOUNJARO [Suspect]
     Active Substance: TIRZEPATIDE
     Indication: Weight control
     Route: 065
     Dates: end: 20250625

REACTIONS (6)
  - Gallbladder disorder [Recovering/Resolving]
  - Gallbladder obstruction [Unknown]
  - Liver disorder [Unknown]
  - Heart rate increased [Unknown]
  - Cholelithiasis [Unknown]
  - Hypotension [Unknown]

NARRATIVE: CASE EVENT DATE: 20250627
